FAERS Safety Report 4944587-9 (Version None)
Quarter: 2006Q1

REPORT INFORMATION
  Report Type: 
  Country: None (occurrence: None)
  Receive Date: 20060315
  Receipt Date: 20060303
  Transmission Date: 20060701
  Serious: Yes (Other)
  Sender: FDA-Public Use
  Company Number: PHRM2006FR00968

PATIENT
  Sex: Male

DRUGS (1)
  1. AREDIA [Suspect]
     Indication: MULTIPLE MYELOMA
     Dosage: 1 DF, QMO
     Route: 042

REACTIONS (2)
  - DENTAL CARIES [None]
  - STREPTOCOCCAL SEPSIS [None]
